FAERS Safety Report 21233781 (Version 1)
Quarter: 2022Q3

REPORT INFORMATION
  Report Type: Spontaneous
  Country: US (occurrence: None)
  Receive Date: 20220819
  Receipt Date: 20220819
  Transmission Date: 20221027
  Serious: No
  Sender: FDA-Public Use
  Company Number: None

PATIENT
  Sex: Female

DRUGS (1)
  1. OPSUMIT [Suspect]
     Active Substance: MACITENTAN
     Indication: Pulmonary arterial hypertension
     Dosage: 10MG ONCE DAILY ORAL?
     Route: 048
     Dates: start: 20200219

REACTIONS (5)
  - Hot flush [None]
  - Dyspnoea [None]
  - Dizziness [None]
  - Fall [None]
  - Arthralgia [None]
